FAERS Safety Report 19872627 (Version 1)
Quarter: 2021Q3

REPORT INFORMATION
  Report Type: Report from Study
  Country: US (occurrence: US)
  Receive Date: 20210923
  Receipt Date: 20210923
  Transmission Date: 20211014
  Serious: Yes (Hospitalization)
  Sender: FDA-Public Use
  Company Number: US-MYLANLABS-2021M1064465

PATIENT
  Age: 4 Year

DRUGS (12)
  1. DINUTUXIMAB [Suspect]
     Active Substance: DINUTUXIMAB
     Indication: NEUROBLASTOMA
     Dosage: 17.5 MILLIGRAM/SQ. METER, CYCLE (ON DAYS 2?5 OF EACH CYCLES, FOR 6 CYCLES)
     Route: 042
  2. VINCRISTINE [Suspect]
     Active Substance: VINCRISTINE
     Indication: NEUROBLASTOMA
     Dosage: 0.67 MILLIGRAM/SQ. METER, CYCLE (VINCRISTINE 0.67 MG/M2/DOSE ON DAYS 1?3 OF CYCLE 4 AND 6)
     Route: 065
  3. TOPOTECAN [Suspect]
     Active Substance: TOPOTECAN HYDROCHLORIDE
     Indication: NEUROBLASTOMA
     Dosage: 1.2 MILLIGRAM/SQ. METER, CYCLE (ON DAYS 1 ? 5 OF CYCLE 1 AND 2)
     Route: 042
  4. CISPLATIN. [Suspect]
     Active Substance: CISPLATIN
     Indication: NEUROBLASTOMA
     Dosage: 50 MILLIGRAM/SQ. METER, CYCLE (CISPLATIN 50 MG/M2/DAY OVER 1 HOUR (DAYS 1?4) OF CYCLE 3 AND 5)
     Route: 042
  5. DOXORUBICIN [Suspect]
     Active Substance: DOXORUBICIN
     Indication: NEUROBLASTOMA
     Dosage: 25 MILLIGRAM/SQ. METER, CYCLE [ON DAYS 1 ? 3 OF CYCLE 4 AND 6]
     Route: 042
  6. BUSULFAN. [Suspect]
     Active Substance: BUSULFAN
     Indication: BONE MARROW CONDITIONING REGIMEN
     Dosage: UNK
     Route: 065
  7. ISOTRETINOIN. [Suspect]
     Active Substance: ISOTRETINOIN
     Indication: NEUROBLASTOMA
     Dosage: UNK, CYCLE
     Route: 065
  8. INTERLEUKIN?2 [Suspect]
     Active Substance: ALDESLEUKIN
     Indication: NEUROBLASTOMA
     Dosage: UNK, CYCLE (BEGAN THE DAY FOLLOWING THE...
     Route: 058
  9. ETOPOSIDE. [Suspect]
     Active Substance: ETOPOSIDE
     Indication: NEUROBLASTOMA
     Dosage: 200 MILLIGRAM/SQ. METER, CYCLE [ETOPOSIDE 200 MG/M2/DAY OVER 1 HOUR (DAYS 1?3) OF CYCLE 3 AND 5]
     Route: 042
  10. MESNA. [Suspect]
     Active Substance: MESNA
     Indication: NEUROBLASTOMA
     Dosage: 525 MILLIGRAM/SQ. METER, CYCLE (ADMINISTERED..
     Route: 042
  11. MELPHALAN. [Suspect]
     Active Substance: MELPHALAN
     Indication: BONE MARROW CONDITIONING REGIMEN
     Dosage: UNK
     Route: 065
  12. CYCLOPHOSPHAMIDE. [Suspect]
     Active Substance: CYCLOPHOSPHAMIDE
     Indication: NEUROBLASTOMA
     Dosage: 400 MILLIGRAM/SQ. METER, CYCLE (ON DAYS 1 ? 5 OF CYCLE 1 AND 2 )
     Route: 042

REACTIONS (3)
  - Pancytopenia [Unknown]
  - Pain [Unknown]
  - Off label use [Unknown]
